FAERS Safety Report 7183739-7 (Version None)
Quarter: 2010Q4

REPORT INFORMATION
  Report Type: 
  Country: None (occurrence: None)
  Receive Date: 20101220
  Receipt Date: 20101220
  Transmission Date: 20110411
  Serious: Yes (Hospitalization)
  Sender: FDA-Public Use
  Company Number: None

PATIENT
  Age: 75 Year
  Sex: Male
  Weight: 77.2 kg

DRUGS (9)
  1. COUMADIN [Suspect]
     Indication: ATRIAL FIBRILLATION
     Dosage: 7.5MG MWF PO CHRONIC
     Route: 048
  2. COUMADIN [Suspect]
     Indication: ATRIAL FIBRILLATION
     Dosage: 5MG T TH SS PO CHRONIC
     Route: 048
  3. COSOPT [Concomitant]
  4. NEXIUM [Concomitant]
  5. FLECAINIDE [Concomitant]
  6. FOLATE [Concomitant]
  7. SELENIUM [Concomitant]
  8. VIT D [Concomitant]
  9. LUMIGAN [Concomitant]

REACTIONS (2)
  - DERMATITIS ALLERGIC [None]
  - GASTROINTESTINAL HAEMORRHAGE [None]
